FAERS Safety Report 12683349 (Version 2)
Quarter: 2016Q4

REPORT INFORMATION
  Report Type: Spontaneous
  Country: US (occurrence: US)
  Receive Date: 20160825
  Receipt Date: 20161018
  Transmission Date: 20170207
  Serious: No
  Sender: FDA-Public Use
  Company Number: US-PFIZER INC-2016398175

PATIENT
  Age: 62 Year
  Sex: Female
  Weight: 61.23 kg

DRUGS (20)
  1. BACLOFEN. [Concomitant]
     Active Substance: BACLOFEN
     Indication: MUSCLE SPASTICITY
     Dosage: 40 MG, DAILY (6:00AM:10MG(1/2), :00PM: 10MG(1/2); 10:00PM:20MG(1/2) )
  2. CITRACAL [Concomitant]
     Active Substance: CALCIUM CITRATE
     Indication: BONE DISORDER
     Dosage: 500 MG, 1X/DAY ( D3 (1000 IU); 6:00PM: 500 MG (2 GUM))
  3. LYRICA [Suspect]
     Active Substance: PREGABALIN
     Indication: MULTIPLE SCLEROSIS
     Dosage: 50 MG, 3X/DAY (6:00AM:50MG ; 2:00PM: 50MG 10:00PM:50MG)
     Route: 048
  4. OXYGEN. [Concomitant]
     Active Substance: OXYGEN
     Indication: APNOEA
     Dosage: 2 L, 1X/DAY (AT NIGHT)
  5. ALBUTEROL SULFATE. [Concomitant]
     Active Substance: ALBUTEROL SULFATE
     Indication: NASAL CONGESTION
     Dosage: 0.083 %, 1X/DAY (NIGHT)
  6. SODIUM CHLORIDE. [Concomitant]
     Active Substance: SODIUM CHLORIDE
     Indication: NASAL CONGESTION
     Dosage: 3.000 %, 1X/DAY (1 VIAL IN MORNING)
  7. PROBIOTICS [Concomitant]
     Active Substance: PROBIOTICS NOS
     Indication: DYSPEPSIA
     Dosage: 2 DF, 1X/DAY (2 CAP, {1GM), (6:00PM: {1 GM (2 CAP))
  8. LASIX [Concomitant]
     Active Substance: FUROSEMIDE
     Indication: DIURETIC THERAPY
     Dosage: 60 MG, DAILY (6:00AM:40MG; 2:00PM: 20MG)
  9. RANITIDINE. [Concomitant]
     Active Substance: RANITIDINE
     Indication: GASTROOESOPHAGEAL REFLUX DISEASE
     Dosage: 150 MG, 2X/DAY (6:00AM:150MG; 6:00PM: 150MG)
  10. VALIUM [Concomitant]
     Active Substance: DIAZEPAM
     Indication: MUSCLE SPASMS
     Dosage: 5 MG, AS NEEDED (10:00PM: 2-1/2MG 10PM,; 2-1/2MG 2AM)
  11. AMBIEN [Concomitant]
     Active Substance: ZOLPIDEM TARTRATE
     Indication: SLEEP DISORDER
     Dosage: 10 MG, AS NEEDED (5MG AT 10 PM; 5MG AT 2 PM)
  12. LYRICA [Suspect]
     Active Substance: PREGABALIN
     Indication: NEURALGIA
  13. MAGNESIUM CITRATE. [Concomitant]
     Active Substance: MAGNESIUM CITRATE
     Indication: MUSCLE DISORDER
     Dosage: 400 MG, 1X/DAY (6:00PM: 400 MG)
  14. RANEXA [Concomitant]
     Active Substance: RANOLAZINE
     Indication: CARDIAC DISORDER
     Dosage: 500 MG, 2X/DAY (6:00AM: 500MG; 6:00PM: 500MG)
  15. CRANBERRY. [Concomitant]
     Active Substance: CRANBERRY
     Indication: URINARY TRACT DISORDER
     Dosage: 3600 MG, 1X/DAY (6:00PM: 3600 MG)
  16. VITAMIN D3 [Concomitant]
     Active Substance: CHOLECALCIFEROL
     Indication: SUPPLEMENTATION THERAPY
     Dosage: 2000 IU, 1X/DAY (: 6:00PM: 2000 UNITS)
  17. OXYBUTYNIN [Concomitant]
     Active Substance: OXYBUTYNIN
     Indication: AUTOMATIC BLADDER
     Dosage: 5 MG, 1X/DAY (6:00AM:5MG )
  18. MAGNESIUM CITRATE. [Concomitant]
     Active Substance: MAGNESIUM CITRATE
     Indication: NERVE INJURY
  19. OXYGEN. [Concomitant]
     Active Substance: OXYGEN
     Indication: HYPOXIA
  20. POLYETHYLENE GLYCOL 3350. [Concomitant]
     Active Substance: POLYETHYLENE GLYCOL 3350
     Indication: CONSTIPATION
     Dosage: 17 G, 2X/DAY (6:00AM: 17GM, 10:00PM: 17GM)

REACTIONS (3)
  - Product use issue [Unknown]
  - Intentional product misuse [Unknown]
  - Dysphagia [Unknown]
